FAERS Safety Report 8717928 (Version 5)
Quarter: 2013Q4

REPORT INFORMATION
  Report Type: Spontaneous
  Country: GB (occurrence: GB)
  Receive Date: 20120810
  Receipt Date: 20131015
  Transmission Date: 20140711
  Serious: Yes (Death, Hospitalization, Other)
  Sender: FDA-Public Use
  Company Number: GB-ROCHE-1099612

PATIENT
  Age: 59 Year
  Sex: Female

DRUGS (8)
  1. ROACTEMRA [Suspect]
     Indication: RHEUMATOID ARTHRITIS
     Dosage: OTHER INFUSIONS ON 10 FEB, 9 MAR AND 13 JUL 2012
     Route: 042
     Dates: start: 20111215
  2. WARFARIN [Concomitant]
     Indication: DIVERTICULITIS
     Dosage: AS REQUIRED
     Route: 048
  3. FLURBIPROFEN [Concomitant]
     Indication: ARTHRALGIA
     Route: 048
  4. PREDNISOLON [Concomitant]
     Indication: ARTHRITIS
     Route: 048
  5. OMEPRAZOLE [Concomitant]
     Indication: PROPHYLAXIS
     Route: 048
  6. TRAMADOL [Concomitant]
     Indication: ANALGESIC THERAPY
     Dosage: FREQUENCY QDS
     Route: 048
  7. PARACETAMOL [Concomitant]
     Dosage: FREQUENCY QDS
     Route: 065
  8. METHOTREXATE [Concomitant]

REACTIONS (11)
  - Abscess rupture [Fatal]
  - Gastrointestinal perforation [Fatal]
  - Deep vein thrombosis [Unknown]
  - C-reactive protein increased [Unknown]
  - Back pain [Unknown]
  - Anaemia [Unknown]
  - Pulmonary embolism [Unknown]
  - Diverticulum [Unknown]
  - Urinary tract infection [Unknown]
  - Rheumatoid arthritis [Unknown]
  - Erythema [Unknown]
